FAERS Safety Report 11548880 (Version 1)
Quarter: 2015Q3

REPORT INFORMATION
  Report Type: Spontaneous
  Country: US (occurrence: US)
  Receive Date: 20150924
  Receipt Date: 20150924
  Transmission Date: 20151125
  Serious: No
  Sender: FDA-Public Use
  Company Number: US-INCYTE CORPORATION-2015IN002438

PATIENT
  Sex: Male

DRUGS (1)
  1. JAKAFI [Suspect]
     Active Substance: RUXOLITINIB
     Indication: POLYCYTHAEMIA VERA
     Dosage: 10 MG, QD
     Route: 048
     Dates: start: 2015

REACTIONS (8)
  - Nausea [Unknown]
  - Therapeutic response unexpected [Unknown]
  - Amnesia [Unknown]
  - Headache [Unknown]
  - Dizziness [Unknown]
  - Splenomegaly [Unknown]
  - Asthenia [Unknown]
  - Hepatomegaly [Unknown]
